FAERS Safety Report 7984935-9 (Version None)
Quarter: 2011Q4

REPORT INFORMATION
  Report Type: 
  Country: None (occurrence: None)
  Receive Date: 20111216
  Receipt Date: 20111025
  Transmission Date: 20120403
  Serious: No
  Sender: FDA-Public Use
  Company Number: US-ALLERGAN-1114071US

PATIENT
  Sex: Female

DRUGS (2)
  1. LATISSE [Suspect]
     Dosage: 2 GTT, QHS
     Route: 061
     Dates: start: 20110301, end: 20110501
  2. LATISSE [Suspect]
     Indication: HYPOTRICHOSIS
     Dosage: 2 GTT, QHS
     Route: 061
     Dates: start: 20110301, end: 20110501

REACTIONS (1)
  - SKIN HYPERPIGMENTATION [None]
